FAERS Safety Report 9646069 (Version 1)
Quarter: 2013Q4

REPORT INFORMATION
  Report Type: Spontaneous
  Country: US (occurrence: None)
  Receive Date: 20131023
  Receipt Date: 20131023
  Transmission Date: 20140711
  Serious: Yes (Hospitalization)
  Sender: FDA-Public Use
  Company Number: ACO_39087_2013

PATIENT
  Age: 70 Year
  Sex: Female

DRUGS (5)
  1. AMPYRA [Suspect]
     Indication: PRODUCT USED FOR UNKNOWN INDICATION
     Dates: start: 201007
  2. ECOTRIN (ACETLSALICYLIC ACID) [Concomitant]
  3. GINKGO (GINKGO BILOBE) [Concomitant]
  4. TYLENOL (PARACETAMOL) [Concomitant]
  5. AVONEX (INTERFERON BETA-1A) [Concomitant]

REACTIONS (4)
  - Cardiac failure congestive [None]
  - Kidney infection [None]
  - Intestinal obstruction [None]
  - Incision site cellulitis [None]
